FAERS Safety Report 4813572-X (Version None)
Quarter: 2005Q4

REPORT INFORMATION
  Report Type: 
  Country: None (occurrence: None)
  Receive Date: 20051028
  Receipt Date: 20050222
  Transmission Date: 20060501
  Serious: No
  Sender: FDA-Public Use
  Company Number: US-GLAXOSMITHKLINE-A0547396A

PATIENT
  Age: 73 Year
  Sex: Female
  Weight: 89.1 kg

DRUGS (3)
  1. ADVAIR DISKUS 100/50 [Suspect]
     Indication: ASTHMA
     Route: 055
  2. ALBUTEROL [Concomitant]
     Route: 055
  3. LIPITOR [Concomitant]
     Route: 048

REACTIONS (1)
  - DYSPNOEA [None]
